FAERS Safety Report 5968308-6 (Version None)
Quarter: 2008Q4

REPORT INFORMATION
  Report Type: 
  Country: None (occurrence: None)
  Receive Date: 20081126
  Receipt Date: 20081117
  Transmission Date: 20090506
  Serious: Yes (Life-Threatening, Hospitalization, Other)
  Sender: FDA-Public Use
  Company Number: FR-ELI_LILLY_AND_COMPANY-FR200801000587

PATIENT
  Age: 72 Year
  Sex: Male

DRUGS (6)
  1. GEMCITABINE HCL [Suspect]
     Indication: BLADDER CANCER
     Dosage: 1250 MG/M2, UNK (ON D1 AND D8 FOR THREE WEEKLY CYCLES
     Route: 065
  2. CISPLATIN [Concomitant]
     Dosage: 75 MG/M2, UNK (ON D1 FOR THREE WEEKLY CYCLES)
     Route: 065
  3. ATENOLOL [Concomitant]
  4. ACETYLSALICYLIC ACID SRT [Concomitant]
  5. METFORMIN [Concomitant]
  6. SIMVASTATIN [Concomitant]

REACTIONS (6)
  - ACUTE RESPIRATORY DISTRESS SYNDROME [None]
  - BRONCHOSPASM [None]
  - CAPILLARY LEAK SYNDROME [None]
  - CIRCULATORY COLLAPSE [None]
  - INTERSTITIAL LUNG DISEASE [None]
  - MALIGNANT NEOPLASM PROGRESSION [None]
